FAERS Safety Report 6442704-5 (Version None)
Quarter: 2009Q4

REPORT INFORMATION
  Report Type: 
  Country: None (occurrence: None)
  Receive Date: 20091112
  Receipt Date: 20091104
  Transmission Date: 20100525
  Serious: Yes (Other)
  Sender: FDA-Public Use
  Company Number: 2009SP034657

PATIENT
  Age: 12 Year
  Sex: Male
  Weight: 43 kg

DRUGS (4)
  1. VECURONIUM BROMIDE [Suspect]
     Indication: HYPOTONIA
     Dosage: 5 MG; IV
     Route: 042
  2. THIAMYLAL (THIAMYLAL) [Suspect]
     Indication: ANAESTHESIA PROCEDURE
  3. FENTANYL-100 [Suspect]
     Indication: ANALGESIC THERAPY
  4. SEVOFLURANE [Suspect]
     Indication: MAINTENANCE OF ANAESTHESIA

REACTIONS (3)
  - ACIDOSIS [None]
  - BASE EXCESS [None]
  - HYPERTHERMIA MALIGNANT [None]
